FAERS Safety Report 4532229-6 (Version None)
Quarter: 2004Q4

REPORT INFORMATION
  Report Type: 
  Country: None (occurrence: None)
  Receive Date: 20041217
  Receipt Date: 20040910
  Transmission Date: 20050328
  Serious: Yes (Disabling)
  Sender: FDA-Public Use
  Company Number: 2004SE04310

PATIENT
  Age: 74 Year
  Sex: Male
  Weight: 80 kg

DRUGS (5)
  1. NEXIUM [Suspect]
     Indication: HELICOBACTER INFECTION
     Dosage: 40 MG DAILY PO
     Route: 048
     Dates: start: 20040705, end: 20040711
  2. HELICLAR [Suspect]
     Indication: HELICOBACTER INFECTION
     Dosage: 40 MG DAILY PO
     Route: 048
     Dates: start: 20040705, end: 20040711
  3. FLEMOXIN [Suspect]
     Indication: HELICOBACTER INFECTION
     Dosage: 40 MG DAILY PO
     Route: 048
     Dates: start: 20040705, end: 20040711
  4. DORMONOCT [Concomitant]
  5. LIPITOR [Concomitant]

REACTIONS (1)
  - MYALGIA [None]
